FAERS Safety Report 15824203 (Version 1)
Quarter: 2019Q1

REPORT INFORMATION
  Report Type: Spontaneous
  Country: NO (occurrence: NO)
  Receive Date: 20190114
  Receipt Date: 20190114
  Transmission Date: 20190417
  Serious: Yes (Hospitalization)
  Sender: FDA-Public Use
  Company Number: NO-009507513-1901NOR004364

PATIENT
  Age: 38 Year
  Sex: Female

DRUGS (10)
  1. OVITRELLE [Suspect]
     Active Substance: CHORIOGONADOTROPIN ALFA
     Indication: IN VITRO FERTILISATION
     Dosage: 250 MICROGRAM, UNK
     Route: 058
     Dates: start: 20181110
  2. PETHIDINE HCL JEIL [Concomitant]
     Indication: ANALGESIC THERAPY
     Dosage: 25 MILLIGRAM, UNK
     Route: 042
     Dates: start: 20181112
  3. FRAGMIN [Concomitant]
     Active Substance: DALTEPARIN SODIUM
     Indication: PRODUCT USED FOR UNKNOWN INDICATION
     Dosage: 5000 IU, UNK
     Route: 058
     Dates: start: 20181114, end: 20181128
  4. ALBYL [Concomitant]
     Indication: PRODUCT USED FOR UNKNOWN INDICATION
     Dosage: 75 MILLIGRAM, UNK
     Route: 048
     Dates: start: 20181114, end: 20181128
  5. ORGALUTRAN [Suspect]
     Active Substance: GANIRELIX ACETATE
     Indication: IN VITRO FERTILISATION
     Dosage: 0.25 MG, DAILY
     Route: 058
     Dates: start: 20181106, end: 20181110
  6. PARACETAMOL ARROW [Concomitant]
     Active Substance: ACETAMINOPHEN
     Indication: ANALGESIC THERAPY
     Dosage: 1.5 MILLIGRAM, UNK
     Route: 048
     Dates: start: 20181112
  7. LIDOCAINE. [Concomitant]
     Active Substance: LIDOCAINE
     Indication: ANALGESIC THERAPY
     Dosage: 10 MILLIGRAM, UNK
     Route: 067
     Dates: start: 20181112
  8. MENOPUR [Suspect]
     Active Substance: FOLLITROPIN\LUTEINIZING HORMONE
     Indication: IN VITRO FERTILISATION
     Dosage: 150 IU, DAILY
     Route: 058
     Dates: start: 20181101, end: 20181109
  9. BEMFOLA [Suspect]
     Active Substance: FOLLITROPIN
     Indication: IN VITRO FERTILISATION
     Dosage: 75 INTERNATIONAL UNIT, UNK
     Route: 058
     Dates: start: 20181110
  10. VIVAL [Concomitant]
     Active Substance: DIAZEPAM
     Indication: ANALGESIC THERAPY
     Dosage: 5 MILLIGRAM, UNK
     Route: 048
     Dates: start: 20181112

REACTIONS (2)
  - Product preparation issue [Unknown]
  - Ovarian hyperstimulation syndrome [Recovered/Resolved]

NARRATIVE: CASE EVENT DATE: 20181119
